FAERS Safety Report 16591128 (Version 1)
Quarter: 2019Q3

REPORT INFORMATION
  Report Type: Spontaneous
  Country: US (occurrence: US)
  Receive Date: 20190718
  Receipt Date: 20190718
  Transmission Date: 20191004
  Serious: Yes (Death)
  Sender: FDA-Public Use
  Company Number: US-SWEDISH ORPHAN BIOVITRUM-2018US0499

PATIENT
  Sex: Female

DRUGS (1)
  1. ANAKINRA [Suspect]
     Active Substance: ANAKINRA

REACTIONS (4)
  - Serum ferritin increased [Fatal]
  - Aspartate aminotransferase increased [Fatal]
  - Blood lactate dehydrogenase increased [Fatal]
  - Anaemia [Fatal]
